FAERS Safety Report 7034746-6 (Version None)
Quarter: 2010Q4

REPORT INFORMATION
  Report Type: 
  Country: None (occurrence: None)
  Receive Date: 20101008
  Receipt Date: 20100929
  Transmission Date: 20110411
  Serious: Yes (Disabling)
  Sender: FDA-Public Use
  Company Number: PHHY2010PT64622

PATIENT
  Sex: Female

DRUGS (1)
  1. VOLTAREN [Suspect]
     Indication: BACK PAIN
     Dosage: 1 DF, PER DAY
     Route: 030
     Dates: start: 20100907, end: 20100911

REACTIONS (3)
  - DIARRHOEA [None]
  - MYALGIA [None]
  - VERTIGO [None]
